FAERS Safety Report 7853008-8 (Version None)
Quarter: 2011Q4

REPORT INFORMATION
  Report Type: 
  Country: None (occurrence: None)
  Receive Date: 20111026
  Receipt Date: 20111025
  Transmission Date: 20120403
  Serious: Yes (Death, Hospitalization)
  Sender: FDA-Public Use
  Company Number: US-CEPHALON-2011005520

PATIENT
  Sex: Male
  Weight: 65 kg

DRUGS (14)
  1. TREANDA [Suspect]
     Indication: MULTIPLE MYELOMA
     Route: 041
     Dates: start: 20110813, end: 20110814
  2. LENALIDOMIDE [Concomitant]
     Indication: MULTIPLE MYELOMA
     Dates: start: 20110813
  3. DEXAMETHASONE [Concomitant]
     Indication: MULTIPLE MYELOMA
     Dates: start: 20110813
  4. PRAVACHOL [Concomitant]
     Dates: start: 20110806
  5. TREANDA [Suspect]
     Route: 041
     Dates: start: 20110912, end: 20110913
  6. ARANESP [Concomitant]
     Dates: start: 20110912
  7. ASPIRIN [Concomitant]
     Dates: start: 20110813
  8. VALACYCLOVIR [Concomitant]
     Dates: start: 20110816
  9. FLUCONAZOLE [Concomitant]
     Dates: start: 20110816
  10. ALLOPURINOL [Concomitant]
     Dates: start: 20110815
  11. COLACE [Concomitant]
     Dates: start: 20110819
  12. OXYCODONE HCL [Concomitant]
     Dates: start: 20110606
  13. GRANISETRON [Concomitant]
     Dates: start: 20110912
  14. GABAPENTIN [Concomitant]
     Dates: start: 20110426

REACTIONS (2)
  - PNEUMONIA [None]
  - BACTERAEMIA [None]
